FAERS Safety Report 11192202 (Version 2)
Quarter: 2015Q3

REPORT INFORMATION
  Report Type: Report from Study
  Country: US (occurrence: US)
  Receive Date: 20150616
  Receipt Date: 20150909
  Transmission Date: 20151125
  Serious: Yes (Hospitalization)
  Sender: FDA-Public Use
  Company Number: US-BIOGENIDEC-2015BI080186

PATIENT
  Age: 46 Year
  Sex: Female

DRUGS (7)
  1. ADVIL [Concomitant]
     Active Substance: IBUPROFEN
  2. GABAPENTIN. [Concomitant]
     Active Substance: GABAPENTIN
  3. JANUMET [Concomitant]
     Active Substance: METFORMIN HYDROCHLORIDE\SITAGLIPTIN PHOSPHATE
  4. GLIPIZIDE. [Concomitant]
     Active Substance: GLIPIZIDE
  5. VITAMIN D [Concomitant]
     Active Substance: CHOLECALCIFEROL
  6. TECFIDERA [Suspect]
     Active Substance: DIMETHYL FUMARATE
     Indication: MULTIPLE SCLEROSIS
     Route: 048
     Dates: start: 201503
  7. ZYRTEC [Concomitant]
     Active Substance: CETIRIZINE HYDROCHLORIDE

REACTIONS (5)
  - Depressed mood [Unknown]
  - Urinary tract infection [Recovered/Resolved]
  - Stress [Unknown]
  - Urinary retention [Unknown]
  - Fatigue [Not Recovered/Not Resolved]

NARRATIVE: CASE EVENT DATE: 2015
